FAERS Safety Report 9441107 (Version 1)
Quarter: 2013Q3

REPORT INFORMATION
  Report Type: Spontaneous
  Country: FR (occurrence: FR)
  Receive Date: 20130805
  Receipt Date: 20130805
  Transmission Date: 20140515
  Serious: Yes (Life-Threatening, Hospitalization, Other)
  Sender: FDA-Public Use
  Company Number: FR-UCBSA-093416

PATIENT
  Age: 18 Year
  Sex: Female

DRUGS (3)
  1. KEPPRA [Suspect]
     Indication: JUVENILE MYOCLONIC EPILEPSY
     Route: 048
     Dates: start: 201206
  2. KEPPRA [Suspect]
     Indication: JUVENILE MYOCLONIC EPILEPSY
     Route: 048
  3. KEPPRA [Suspect]
     Indication: JUVENILE MYOCLONIC EPILEPSY
     Route: 048
     Dates: start: 201306

REACTIONS (5)
  - Suicide attempt [Recovered/Resolved]
  - Fatigue [Unknown]
  - Paraesthesia [Unknown]
  - Hallucination [Unknown]
  - Weight decreased [Unknown]
